FAERS Safety Report 4774499-5 (Version None)
Quarter: 2005Q3

REPORT INFORMATION
  Report Type: 
  Country: None (occurrence: None)
  Receive Date: 20050920
  Receipt Date: 20050909
  Transmission Date: 20060218
  Serious: Yes (Death, Hospitalization)
  Sender: FDA-Public Use
  Company Number: CLOF-10101

PATIENT
  Sex: Male

DRUGS (1)
  1. CLOFARABINE [Suspect]
     Indication: DRUG USE FOR UNKNOWN INDICATION
     Dosage: 20 MG/M2 QD IV
     Route: 042
     Dates: start: 20050520, end: 20050524

REACTIONS (3)
  - CEREBRAL HAEMORRHAGE [None]
  - FEBRILE NEUTROPENIA [None]
  - PNEUMONIA [None]
